FAERS Safety Report 4779494-8 (Version None)
Quarter: 2005Q3

REPORT INFORMATION
  Report Type: 
  Country: None (occurrence: None)
  Receive Date: 20050922
  Receipt Date: 20050113
  Transmission Date: 20060218
  Serious: Yes (Other)
  Sender: FDA-Public Use
  Company Number: 2005013784

PATIENT
  Sex: Female
  Weight: 53.978 kg

DRUGS (1)
  1. ZYRTEC [Suspect]
     Indication: HYPERSENSITIVITY
     Dosage: ORAL
     Route: 048
     Dates: end: 20040101

REACTIONS (3)
  - HYPERSENSITIVITY [None]
  - WEIGHT DECREASED [None]
  - WEIGHT INCREASED [None]
